FAERS Safety Report 8138536-2 (Version None)
Quarter: 2012Q1

REPORT INFORMATION
  Report Type: 
  Country: None (occurrence: None)
  Receive Date: 20120215
  Receipt Date: 20120209
  Transmission Date: 20120608
  Serious: Yes (Hospitalization)
  Sender: FDA-Public Use
  Company Number: JP-PFIZER INC-2012019932

PATIENT
  Age: 88 Year
  Sex: Female
  Weight: 43 kg

DRUGS (4)
  1. AMLODIPINE BESYLATE [Suspect]
     Indication: HYPERTENSION
     Dosage: 10 MG, 1X/DAY
     Dates: start: 20111018
  2. OLMESARTAN MEDOXOMIL [Concomitant]
     Dosage: 20 MG/DAY
     Route: 048
  3. VIVIANT [Concomitant]
     Dosage: UNK
     Route: 048
     Dates: start: 20111018
  4. ARICEPT [Concomitant]
     Dosage: UNK
     Route: 048
     Dates: start: 20100101

REACTIONS (2)
  - FALL [None]
  - FEMUR FRACTURE [None]
